FAERS Safety Report 13830797 (Version 2)
Quarter: 2017Q3

REPORT INFORMATION
  Report Type: Spontaneous
  Country: JP (occurrence: JP)
  Receive Date: 20170803
  Receipt Date: 20170815
  Transmission Date: 20171127
  Serious: Yes (Death, Other)
  Sender: FDA-Public Use
  Company Number: JP-PFIZER INC-2016514608

PATIENT
  Age: 57 Year
  Sex: Female

DRUGS (4)
  1. BUCILLAMINE [Concomitant]
     Active Substance: BUCILLAMINE
     Indication: RHEUMATOID ARTHRITIS
     Dosage: UNK
  2. AURANOFIN [Concomitant]
     Active Substance: AURANOFIN
     Indication: RHEUMATOID ARTHRITIS
     Dosage: UNK
  3. METHOTREXATE SODIUM. [Suspect]
     Active Substance: METHOTREXATE SODIUM
     Indication: RHEUMATOID ARTHRITIS
     Dosage: 5 MG, WEEKLY
     Route: 048
     Dates: start: 199109
  4. SODIUM AUROTHIOMALATE [Concomitant]
     Active Substance: GOLD SODIUM THIOMALATE
     Indication: RHEUMATOID ARTHRITIS
     Dosage: UNK

REACTIONS (3)
  - Peritoneal haemorrhage [Fatal]
  - Bone marrow failure [Fatal]
  - Pancytopenia [Unknown]
